FAERS Safety Report 15391723 (Version 1)
Quarter: 2018Q3

REPORT INFORMATION
  Report Type: Spontaneous
  Country: US (occurrence: US)
  Receive Date: 20180910
  Receipt Date: 20180910
  Transmission Date: 20181010
  Serious: Yes (Hospitalization)
  Sender: FDA-Public Use
  Company Number: None

PATIENT
  Age: 70 Year
  Sex: Male

DRUGS (17)
  1. CLOTRIMAZOLE. [Concomitant]
     Active Substance: CLOTRIMAZOLE
  2. FERROUS SULF [Concomitant]
     Active Substance: FERROUS SULFATE
  3. IBRESARTAN [Concomitant]
  4. NOVOLOG [Concomitant]
     Active Substance: INSULIN ASPART
  5. XARELTO [Concomitant]
     Active Substance: RIVAROXABAN
  6. ZYRTEC [Concomitant]
     Active Substance: CETIRIZINE HYDROCHLORIDE
  7. VITAMIN D3 [Concomitant]
     Active Substance: CHOLECALCIFEROL
  8. CLOPIDOGREL [Concomitant]
     Active Substance: CLOPIDOGREL BISULFATE
  9. FUROSEMIDE. [Concomitant]
     Active Substance: FUROSEMIDE
  10. OMEGA 3 [Concomitant]
     Active Substance: OMEGA-3 FATTY ACIDS
  11. ALLOPURINOL. [Concomitant]
     Active Substance: ALLOPURINOL
  12. ONDANSETRON [Concomitant]
     Active Substance: ONDANSETRON
  13. ROSUVASTATIN. [Concomitant]
     Active Substance: ROSUVASTATIN
  14. LONSURF [Suspect]
     Active Substance: TIPIRACIL HYDROCHLORIDE\TRIFLURIDINE
     Indication: NEOPLASM MALIGNANT
     Dosage: ?          OTHER FREQUENCY:BID DAYS 1?5 8?12;?
     Route: 048
     Dates: start: 20180728
  15. LEVEMIR [Concomitant]
     Active Substance: INSULIN DETEMIR
  16. METOPROL TAR [Concomitant]
  17. VITAMIN B6 [Concomitant]
     Active Substance: PYRIDOXINE HYDROCHLORIDE

REACTIONS (4)
  - Drug dose omission [None]
  - Joint swelling [None]
  - Peripheral swelling [None]
  - Gait inability [None]

NARRATIVE: CASE EVENT DATE: 20180827
